FAERS Safety Report 10153332 (Version 1)
Quarter: 2014Q2

REPORT INFORMATION
  Report Type: Spontaneous
  Country: PT (occurrence: PT)
  Receive Date: 20140505
  Receipt Date: 20140505
  Transmission Date: 20141212
  Serious: Yes (Other)
  Sender: FDA-Public Use
  Company Number: PT-ACTAVIS-2014-08858

PATIENT
  Age: 58 Year
  Sex: Female
  Weight: 52 kg

DRUGS (4)
  1. DOCETAXEL ACTAVIS [Suspect]
     Indication: BREAST CANCER
     Dosage: 140 MG, ONCE EVERY 21 DAYS, 4TH CYCLE OF TREATMENT
     Route: 042
     Dates: start: 20140410, end: 20140410
  2. PREDNISOLONA                       /00016201/ [Concomitant]
     Indication: PROPHYLAXIS OF NAUSEA AND VOMITING
     Dosage: 20 MG, BID
     Route: 048
     Dates: start: 20140409, end: 20140410
  3. DEXAMETASONA                       /00016001/ [Concomitant]
     Indication: PROPHYLAXIS OF NAUSEA AND VOMITING
     Dosage: 20 MG, DAILY
     Route: 042
     Dates: start: 20140410, end: 20140410
  4. METILPREDNISOLONA                  /00049601/ [Concomitant]
     Indication: PROPHYLAXIS OF NAUSEA AND VOMITING
     Dosage: 125 MG, DAILY
     Route: 042
     Dates: start: 20140410, end: 20140410

REACTIONS (1)
  - Back pain [Recovered/Resolved]
